FAERS Safety Report 21999097 (Version 1)
Quarter: 2023Q1

REPORT INFORMATION
  Report Type: Report from Study
  Country: US (occurrence: US)
  Receive Date: 20230216
  Receipt Date: 20230216
  Transmission Date: 20230417
  Serious: Yes (Hospitalization, Other)
  Sender: FDA-Public Use
  Company Number: US-UCBSA-2023007567

PATIENT
  Sex: Male

DRUGS (1)
  1. BRIVARACETAM [Suspect]
     Active Substance: BRIVARACETAM
     Indication: Seizure
     Dosage: 75 MILLIGRAM, 2X/DAY (BID)

REACTIONS (5)
  - Pancreatitis [Unknown]
  - Gastrointestinal disorder [Unknown]
  - Ulcer [Unknown]
  - Oesophagitis [Unknown]
  - Weight decreased [Unknown]
